FAERS Safety Report 14595584 (Version 1)
Quarter: 2018Q1

REPORT INFORMATION
  Report Type: Spontaneous
  Country: US (occurrence: US)
  Receive Date: 20180303
  Receipt Date: 20180303
  Transmission Date: 20180509
  Serious: No
  Sender: FDA-Public Use
  Company Number: US-JNJFOC-20180215181

PATIENT
  Age: 70 Year
  Sex: Male
  Weight: 92.99 kg

DRUGS (2)
  1. NIZORAL A-D [Suspect]
     Active Substance: KETOCONAZOLE
     Indication: ROSACEA
     Dosage: FOR OVER 10 YEARS
     Route: 061
  2. NIZORAL A-D [Suspect]
     Active Substance: KETOCONAZOLE
     Route: 061

REACTIONS (2)
  - Off label use [Unknown]
  - Product use in unapproved indication [Unknown]
